FAERS Safety Report 9475881 (Version 2)
Quarter: 2013Q3

REPORT INFORMATION
  Report Type: Spontaneous
  Country: US (occurrence: US)
  Receive Date: 20130826
  Receipt Date: 20130911
  Transmission Date: 20140515
  Serious: Yes (Other)
  Sender: FDA-Public Use
  Company Number: US-PFIZER INC-2013245775

PATIENT
  Age: 37 Year
  Sex: Male
  Weight: 76.64 kg

DRUGS (3)
  1. LYRICA [Suspect]
     Indication: FIBROMYALGIA
     Dosage: 300 MG, 3X/DAY
     Route: 048
     Dates: start: 200910
  2. LYRICA [Suspect]
     Indication: DIABETIC NEUROPATHY
  3. REQUIP [Concomitant]
     Indication: RESTLESS LEGS SYNDROME
     Dosage: 20 MG, 3X/DAY

REACTIONS (3)
  - Weight increased [Unknown]
  - Myalgia [Not Recovered/Not Resolved]
  - Weight decreased [Unknown]
